FAERS Safety Report 9544141 (Version 2)
Quarter: 2013Q3

REPORT INFORMATION
  Report Type: Spontaneous
  Country: DE (occurrence: DE)
  Receive Date: 20130923
  Receipt Date: 20130923
  Transmission Date: 20140515
  Serious: Yes (Hospitalization)
  Sender: FDA-Public Use
  Company Number: DE-009507513-1302DEU004591

PATIENT
  Age: 38 Year
  Sex: Male

DRUGS (1)
  1. NASONEX [Suspect]
     Indication: SINUSITIS
     Dosage: 2 PUFFS ONCE DAILY
     Route: 045
     Dates: start: 201208

REACTIONS (1)
  - Hypothalamic pituitary adrenal axis suppression [Unknown]
